FAERS Safety Report 4300752-5 (Version None)
Quarter: 2004Q1

REPORT INFORMATION
  Report Type: 
  Country: None (occurrence: None)
  Receive Date: 20040220
  Receipt Date: 20040220
  Transmission Date: 20041129
  Serious: No
  Sender: FDA-Public Use
  Company Number: None

PATIENT
  Age: 38 Year
  Sex: Male
  Weight: 86 kg

DRUGS (6)
  1. GAMMAR-P I.V. [Suspect]
     Indication: BONE MARROW TRANSPLANT
     Dosage: 20 GM CONTINUOUS INFUSION
     Dates: start: 20010203
  2. GAMMAR-P I.V. [Suspect]
     Indication: MULTIPLE MYELOMA
     Dosage: 20 GM CONTINUOUS INFUSION
     Dates: start: 20010203
  3. GAMMAR-P I.V. [Suspect]
     Indication: BONE MARROW TRANSPLANT
     Dosage: 20 GM CONTINUOUS INFUSION
     Dates: start: 20040112
  4. GAMMAR-P I.V. [Suspect]
     Indication: MULTIPLE MYELOMA
     Dosage: 20 GM CONTINUOUS INFUSION
     Dates: start: 20040112
  5. GAMMAR-P I.V. [Suspect]
     Indication: BONE MARROW TRANSPLANT
     Dosage: 20 GM CONTINUOUS INFUSION
     Dates: start: 20040122
  6. GAMMAR-P I.V. [Suspect]
     Indication: MULTIPLE MYELOMA
     Dosage: 20 GM CONTINUOUS INFUSION
     Dates: start: 20040122

REACTIONS (2)
  - BACK PAIN [None]
  - CHILLS [None]
